FAERS Safety Report 9050008 (Version 1)
Quarter: 2013Q1

REPORT INFORMATION
  Report Type: Spontaneous
  Country: US (occurrence: US)
  Receive Date: 20130205
  Receipt Date: 20130205
  Transmission Date: 20140127
  Serious: No
  Sender: FDA-Public Use
  Company Number: US-GLAXOSMITHKLINE-A0968980A

PATIENT
  Sex: Female

DRUGS (4)
  1. ARIXTRA [Suspect]
     Indication: THROMBOSIS PROPHYLAXIS
     Dosage: 25MG PER DAY
     Route: 058
     Dates: start: 20120219
  2. DILAUDID [Concomitant]
  3. HYDROXYZINE [Concomitant]
  4. IBUPROFEN [Concomitant]
     Dosage: 800MG THREE TIMES PER DAY

REACTIONS (1)
  - Injection site haematoma [Unknown]
